FAERS Safety Report 9344187 (Version 1)
Quarter: 2013Q2

REPORT INFORMATION
  Report Type: Spontaneous
  Country: US (occurrence: US)
  Receive Date: 20130612
  Receipt Date: 20130612
  Transmission Date: 20140414
  Serious: Yes (Hospitalization)
  Sender: FDA-Public Use
  Company Number: US-BAYER-2013-071570

PATIENT
  Age: 44 Year
  Sex: Female
  Weight: 69.84 kg

DRUGS (12)
  1. HYDROCHLOROTHIAZIDE [Concomitant]
     Dosage: 25 MG, 1 BY MOUTH DAILY IN A.M.
     Route: 048
  2. LORTAB [Concomitant]
     Dosage: 5 MG, ON EVERY 4-6 HOURS AS NEEDED
     Route: 048
  3. CATAPRES [Concomitant]
     Route: 048
  4. INNOPRAN [Concomitant]
     Route: 048
  5. DRIXORAL [OXYMETAZOLINE HYDROCHLORIDE] [Concomitant]
  6. BENADRYL [Concomitant]
  7. ACCUTANE [Concomitant]
  8. YASMIN [Suspect]
  9. SKELAXIN [Concomitant]
     Dosage: 400 MG, PRN
     Route: 048
  10. ZANAFLEX [Concomitant]
     Dosage: 4 MG, PRN
     Route: 048
  11. FIORINAL [ACETYLSALICYLIC ACID,BUTALBITAL,CAFFEINE,PHENACETIN] [Concomitant]
     Dosage: UNK UNK, PRN
     Route: 048
  12. RELAFEN [Concomitant]
     Route: 048

REACTIONS (1)
  - Pulmonary embolism [None]
